FAERS Safety Report 4413805-8 (Version None)
Quarter: 2004Q3

REPORT INFORMATION
  Report Type: 
  Country: None (occurrence: None)
  Receive Date: 20040802
  Receipt Date: 20040802
  Transmission Date: 20050211
  Serious: Yes (Death)
  Sender: FDA-Public Use
  Company Number: None

PATIENT
  Age: 22 Year
  Sex: Male
  Weight: 65.5 kg

DRUGS (8)
  1. XIGRIS [Suspect]
     Indication: SEPSIS
     Dosage: 1.57 MG/HR IV
     Route: 042
     Dates: start: 20040603
  2. AMIODARONE [Concomitant]
  3. CIPROFLOXACIN [Concomitant]
  4. VANCOMYCIN HCL [Concomitant]
  5. LEVOFLOXACIN [Concomitant]
  6. SULFAMETHOXAZOLE + TRIMETHOPRIM [Concomitant]
  7. CASPOFUNGIN [Concomitant]
  8. ACYCLOVIR [Concomitant]

REACTIONS (2)
  - EPISTAXIS [None]
  - MOUTH HAEMORRHAGE [None]
